FAERS Safety Report 14138659 (Version 1)
Quarter: 2017Q4

REPORT INFORMATION
  Report Type: Spontaneous
  Country: US (occurrence: US)
  Receive Date: 20171027
  Receipt Date: 20171027
  Transmission Date: 20180321
  Serious: Yes (Hospitalization, Other)
  Sender: FDA-Public Use
  Company Number: US-INTERCEPT-PMOCA2017001200

PATIENT

DRUGS (11)
  1. ZYRTEC [Concomitant]
     Active Substance: CETIRIZINE HYDROCHLORIDE
  2. OCALIVA [Suspect]
     Active Substance: OBETICHOLIC ACID
     Dosage: 10 MG, QD
     Dates: end: 201709
  3. OCALIVA [Suspect]
     Active Substance: OBETICHOLIC ACID
     Indication: BILIARY CIRRHOSIS PRIMARY
     Dosage: 5 MG, QD
     Route: 048
     Dates: start: 201702
  4. REQUIP [Concomitant]
     Active Substance: ROPINIROLE HYDROCHLORIDE
  5. OXYCODONE [Concomitant]
     Active Substance: OXYCODONE
  6. XIFAXAN [Concomitant]
     Active Substance: RIFAXIMIN
  7. RITUXAN [Concomitant]
     Active Substance: RITUXIMAB
  8. ACTIGALL [Concomitant]
     Active Substance: URSODIOL
     Dosage: 1200 MG, QD
  9. DOXYCYCLINE. [Suspect]
     Active Substance: DOXYCYCLINE
  10. TRAZODONE [Concomitant]
     Active Substance: TRAZODONE HYDROCHLORIDE
  11. COLACE [Concomitant]
     Active Substance: DOCUSATE SODIUM

REACTIONS (8)
  - Cholestasis [Unknown]
  - Malaise [Unknown]
  - Peritonitis bacterial [Unknown]
  - Immune thrombocytopenic purpura [Unknown]
  - Ascites [Unknown]
  - Abdominal discomfort [Unknown]
  - Pruritus [Unknown]
  - Hyperbilirubinaemia [Unknown]

NARRATIVE: CASE EVENT DATE: 2017
